FAERS Safety Report 9297683 (Version 2)
Quarter: 2013Q2

REPORT INFORMATION
  Report Type: Spontaneous
  Country: US (occurrence: US)
  Receive Date: 20130520
  Receipt Date: 20130607
  Transmission Date: 20140414
  Serious: Yes (Hospitalization, Other)
  Sender: FDA-Public Use
  Company Number: US-BAYER-2013-062188

PATIENT
  Age: 40 Year
  Sex: Female

DRUGS (8)
  1. YASMIN [Suspect]
     Dosage: UNK
     Dates: start: 200109
  2. LEVOTHROID [Concomitant]
  3. FLUOXETINE HCL [Concomitant]
  4. ALLEGRA [Concomitant]
  5. IBUPROFEN [Concomitant]
  6. FLEXERIL [Concomitant]
  7. CYCLOBENZAPRINE [Concomitant]
  8. SYNTHROID [Concomitant]

REACTIONS (10)
  - Deep vein thrombosis [None]
  - Deep vein thrombosis [None]
  - Pelvic venous thrombosis [None]
  - Pain [None]
  - Injury [None]
  - General physical health deterioration [None]
  - Anxiety [None]
  - Emotional distress [None]
  - Pain [None]
  - Post thrombotic syndrome [None]
